FAERS Safety Report 7048102-8 (Version None)
Quarter: 2010Q4

REPORT INFORMATION
  Report Type: 
  Country: None (occurrence: None)
  Receive Date: 20101015
  Receipt Date: 20101007
  Transmission Date: 20110411
  Serious: Yes (Other)
  Sender: FDA-Public Use
  Company Number: AU-WYE-G06653610

PATIENT
  Sex: Female

DRUGS (1)
  1. PRISTIQ [Suspect]
     Indication: DEPRESSION
     Dosage: 50MG DAILY REDUCED TO 50MG EVERY SECOND DAY
     Dates: start: 20100419, end: 20100915

REACTIONS (7)
  - BLOOD CHOLESTEROL INCREASED [None]
  - CONTUSION [None]
  - DECREASED APPETITE [None]
  - HEPATITIS [None]
  - JAUNDICE [None]
  - NAUSEA [None]
  - URTICARIA [None]
